FAERS Safety Report 9345723 (Version 1)
Quarter: 2013Q2

REPORT INFORMATION
  Report Type: Spontaneous
  Country: US (occurrence: US)
  Receive Date: 20130613
  Receipt Date: 20130613
  Transmission Date: 20140414
  Serious: No
  Sender: FDA-Public Use
  Company Number: US-PFIZER INC-2013174139

PATIENT
  Age: 2 Year
  Sex: Female
  Weight: 12.7 kg

DRUGS (1)
  1. LEVOXYL [Suspect]
     Indication: CONGENITAL HYPOTHYROIDISM
     Dosage: 62.5 UG, 1X/DAY
     Dates: start: 201012

REACTIONS (3)
  - Blood thyroid stimulating hormone increased [Unknown]
  - Constipation [Unknown]
  - Vitamin D decreased [Unknown]
